FAERS Safety Report 25414871 (Version 2)
Quarter: 2025Q2

REPORT INFORMATION
  Report Type: Spontaneous
  Country: US (occurrence: US)
  Receive Date: 20250609
  Receipt Date: 20250627
  Transmission Date: 20250717
  Serious: Yes (Death, Life-Threatening, Disabling, Other)
  Sender: APELLIS PHARMACEUTICALS
  Company Number: SE-BIOVITRUM-2025-SE-007657

PATIENT

DRUGS (22)
  1. PEGCETACOPLAN [Suspect]
     Active Substance: PEGCETACOPLAN
     Indication: Complement factor C3
     Dates: start: 20250418, end: 20250418
  2. PEGCETACOPLAN [Suspect]
     Active Substance: PEGCETACOPLAN
     Dates: start: 20250421, end: 20250421
  3. PEGCETACOPLAN [Suspect]
     Active Substance: PEGCETACOPLAN
     Dates: start: 20250425, end: 20250425
  4. PEGCETACOPLAN [Suspect]
     Active Substance: PEGCETACOPLAN
     Dates: start: 20250428, end: 20250428
  5. PEGCETACOPLAN [Suspect]
     Active Substance: PEGCETACOPLAN
     Dates: start: 20250502, end: 20250502
  6. SIROLIMUS [Concomitant]
     Active Substance: SIROLIMUS
     Indication: Product used for unknown indication
     Dates: start: 20240904, end: 20240910
  7. SIROLIMUS [Concomitant]
     Active Substance: SIROLIMUS
     Dates: start: 20250424, end: 20250502
  8. SIROLIMUS [Concomitant]
     Active Substance: SIROLIMUS
     Dates: start: 20250502
  9. RITUXIMAB [Concomitant]
     Active Substance: RITUXIMAB
     Indication: Product used for unknown indication
     Dates: start: 20240828, end: 20240828
  10. RITUXIMAB [Concomitant]
     Active Substance: RITUXIMAB
     Dates: start: 20250417, end: 20250417
  11. RITUXIMAB [Concomitant]
     Active Substance: RITUXIMAB
     Dates: start: 20250424, end: 20250424
  12. ACETAMINOPHEN [Concomitant]
     Active Substance: ACETAMINOPHEN
     Indication: Product used for unknown indication
     Dates: start: 20250417, end: 20250417
  13. ACETAMINOPHEN [Concomitant]
     Active Substance: ACETAMINOPHEN
     Dates: start: 20250424, end: 20250424
  14. DIPHENHYDRAMINE [Concomitant]
     Active Substance: DIPHENHYDRAMINE
     Indication: Product used for unknown indication
     Dates: start: 20250417, end: 20250417
  15. DIPHENHYDRAMINE [Concomitant]
     Active Substance: DIPHENHYDRAMINE
     Dates: start: 20250424, end: 20250424
  16. AMOXICILLIN [Concomitant]
     Active Substance: AMOXICILLIN
     Indication: Product used for unknown indication
     Dates: start: 20250418
  17. NADOLOL [Concomitant]
     Active Substance: NADOLOL
     Indication: Product used for unknown indication
     Dates: start: 20250418
  18. LISDEXAMFETAMINE DIMESYLATE [Concomitant]
     Active Substance: LISDEXAMFETAMINE DIMESYLATE
     Indication: Product used for unknown indication
     Dates: start: 202408
  19. FLUOXETINE HYDROCHLORIDE [Concomitant]
     Active Substance: FLUOXETINE HYDROCHLORIDE
     Indication: Product used for unknown indication
     Dates: start: 202405
  20. METHYLPREDNISOLONE [Concomitant]
     Active Substance: METHYLPREDNISOLONE
     Indication: Product used for unknown indication
     Dates: start: 20250430, end: 20250504
  21. METHYLPREDNISOLONE [Concomitant]
     Active Substance: METHYLPREDNISOLONE
     Dates: start: 20250507, end: 20250509
  22. ONDANSETRON HYDROCHLORIDE [Concomitant]
     Active Substance: ONDANSETRON HYDROCHLORIDE
     Indication: Product used for unknown indication
     Dates: start: 20250504, end: 20250504

REACTIONS (13)
  - Death [Fatal]
  - Shock [Fatal]
  - Capillary leak syndrome [Recovering/Resolving]
  - Systemic infection [Unknown]
  - Sepsis [Unknown]
  - Hypovolaemic shock [Unknown]
  - Multiple organ dysfunction syndrome [Unknown]
  - Retroperitoneal haemorrhage [Not Recovered/Not Resolved]
  - Pneumothorax [Recovering/Resolving]
  - Acute kidney injury [Not Recovered/Not Resolved]
  - Off label use [Unknown]
  - Lung opacity [Not Recovered/Not Resolved]
  - Hypotension [Unknown]

NARRATIVE: CASE EVENT DATE: 20250508
